FAERS Safety Report 24618947 (Version 2)
Quarter: 2024Q4

REPORT INFORMATION
  Report Type: Report from Study
  Country: US (occurrence: US)
  Receive Date: 20241114
  Receipt Date: 20241127
  Transmission Date: 20250114
  Serious: Yes (Disabling, Other)
  Sender: AGIOS PHARMACEUTICALS
  Company Number: US-AGIOS-2411US03947

PATIENT
  Sex: Male

DRUGS (1)
  1. MITAPIVAT [Suspect]
     Active Substance: MITAPIVAT
     Indication: Pyruvate kinase deficiency anaemia
     Dosage: 50 MILLIGRAM, BID
     Route: 048
     Dates: start: 20230408

REACTIONS (2)
  - Disability [Unknown]
  - Bedridden [Unknown]
